FAERS Safety Report 14034149 (Version 2)
Quarter: 2019Q3

REPORT INFORMATION
  Report Type: Spontaneous
  Country: US (occurrence: US)
  Receive Date: 20171003
  Receipt Date: 20190807
  Transmission Date: 20191004
  Serious: Yes (Other)
  Sender: FDA-Public Use
  Company Number: US-PFIZER INC-2017422197

PATIENT
  Age: 63 Year
  Sex: Male

DRUGS (2)
  1. XALKORI [Suspect]
     Active Substance: CRIZOTINIB
     Indication: LUNG CARCINOMA CELL TYPE UNSPECIFIED STAGE 0
     Dosage: 250 MG, 2X/DAY
     Route: 048
  2. AMOXICILLIN CLAB (AMOXICILLIN) [Interacting]
     Active Substance: AMOXICILLIN
     Indication: INFECTION

REACTIONS (5)
  - Diarrhoea [Unknown]
  - Oesophagitis [Unknown]
  - Nausea [Unknown]
  - Drug interaction [Unknown]
  - Infection [Unknown]
